FAERS Safety Report 5132434-4 (Version None)
Quarter: 2006Q4

REPORT INFORMATION
  Report Type: 
  Country: None (occurrence: None)
  Receive Date: 20061017
  Receipt Date: 20061006
  Transmission Date: 20070319
  Serious: No
  Sender: FDA-Public Use
  Company Number: 2006104790

PATIENT
  Sex: 0

DRUGS (1)
  1. NIFEDIPINE [Suspect]

REACTIONS (2)
  - VISUAL DISTURBANCE [None]
  - VITREOUS FLOATERS [None]
